FAERS Safety Report 8617548-6 (Version None)
Quarter: 2012Q3

REPORT INFORMATION
  Report Type: 
  Country: None (occurrence: None)
  Receive Date: 20120824
  Receipt Date: 20120813
  Transmission Date: 20120928
  Serious: Yes (Death)
  Sender: FDA-Public Use
  Company Number: HU-BRISTOL-MYERS SQUIBB COMPANY-16851586

PATIENT
  Age: 29 Year
  Sex: Female

DRUGS (13)
  1. DOXORUBICIN HYDROCHLORIDE [Suspect]
     Indication: HODGKIN'S DISEASE
     Dates: start: 20060101
  2. CISPLATIN [Suspect]
     Indication: HODGKIN'S DISEASE
     Dates: start: 20060101
  3. DEXAMETHASONE [Concomitant]
  4. VINBLASTINE SULFATE [Suspect]
     Indication: HODGKIN'S DISEASE
     Dates: start: 20060101
  5. DACARBAZINE [Suspect]
     Indication: HODGKIN'S DISEASE
     Dates: start: 20060101
  6. CYTARABINE [Suspect]
     Indication: HODGKIN'S DISEASE
     Dates: start: 20060101
  7. RITUXIMAB [Suspect]
     Indication: HODGKIN'S DISEASE
  8. CARBOPLATIN [Suspect]
     Indication: HODGKIN'S DISEASE
  9. IFOSFAMIDE [Suspect]
     Indication: HODGKIN'S DISEASE
  10. GEMCITABINE HYDROCHLORIDE [Suspect]
     Indication: HODGKIN'S DISEASE
  11. BLEOMYCIN SULFATE [Suspect]
     Indication: HODGKIN'S DISEASE
     Dates: start: 20060101
  12. ETOPOSIDE [Suspect]
     Indication: HODGKIN'S DISEASE
  13. VINORELBINE [Suspect]
     Indication: HODGKIN'S DISEASE

REACTIONS (5)
  - CYTOMEGALOVIRUS INFECTION [None]
  - IMMUNOSUPPRESSION [None]
  - PANCYTOPENIA [None]
  - NEOPLASM MALIGNANT [None]
  - HISTIOCYTOSIS HAEMATOPHAGIC [None]
